FAERS Safety Report 11968840 (Version 1)
Quarter: 2016Q1

REPORT INFORMATION
  Report Type: Spontaneous
  Country: US (occurrence: None)
  Receive Date: 20160127
  Receipt Date: 20160127
  Transmission Date: 20160526
  Serious: Yes (Other)
  Sender: FDA-Public Use
  Company Number: None

PATIENT
  Age: 55 Year
  Sex: Male
  Weight: 90.72 kg

DRUGS (2)
  1. MULTI VITAMIN [Concomitant]
     Active Substance: VITAMINS
  2. PERMETHRIN CREAM 5% PERRIGO [Suspect]
     Active Substance: PERMETHRIN
     Indication: ACARODERMATITIS
     Dosage: COVER ENTIRE SKIN AS NEEDED APPLIED TO A SURFACE, USUALLY THE SKIN
     Route: 061
     Dates: start: 20140601, end: 20160119

REACTIONS (5)
  - Disorientation [None]
  - Memory impairment [None]
  - Confusional state [None]
  - Cognitive disorder [None]
  - Disturbance in attention [None]

NARRATIVE: CASE EVENT DATE: 20160119
